FAERS Safety Report 9777930 (Version 1)
Quarter: 2013Q4

REPORT INFORMATION
  Report Type: Spontaneous
  Country: US (occurrence: US)
  Receive Date: 20131223
  Receipt Date: 20131223
  Transmission Date: 20140711
  Serious: Yes (Other)
  Sender: FDA-Public Use
  Company Number: US-ASTRAZENECA-2013SE91753

PATIENT
  Sex: 0

DRUGS (1)
  1. CAPRELSA [Suspect]
     Route: 048

REACTIONS (1)
  - Metastases to liver [Unknown]
